FAERS Safety Report 21874229 (Version 1)
Quarter: 2023Q1

REPORT INFORMATION
  Report Type: Spontaneous
  Country: US (occurrence: US)
  Receive Date: 20230117
  Receipt Date: 20230117
  Transmission Date: 20230418
  Serious: No
  Sender: FDA-Public Use
  Company Number: US-002147023-NVSC2023US010280

PATIENT
  Age: 59 Year
  Sex: Female
  Weight: 71.668 kg

DRUGS (1)
  1. COSENTYX [Suspect]
     Active Substance: SECUKINUMAB
     Indication: Ankylosing spondylitis
     Dosage: 300 MG, QMO (EVERY4 WEEKS)
     Route: 058
     Dates: start: 20210831

REACTIONS (1)
  - Urticaria chronic [Unknown]

NARRATIVE: CASE EVENT DATE: 20221001
